FAERS Safety Report 25592575 (Version 1)
Quarter: 2025Q3

REPORT INFORMATION
  Report Type: Spontaneous
  Country: US (occurrence: US)
  Receive Date: 20250722
  Receipt Date: 20250722
  Transmission Date: 20251020
  Serious: Yes (Other)
  Sender: ELI LILLY AND COMPANY
  Company Number: US-ELI_LILLY_AND_COMPANY-US202507009894

PATIENT
  Age: 67 Year
  Sex: Female

DRUGS (10)
  1. MOUNJARO [Interacting]
     Active Substance: TIRZEPATIDE
     Indication: Diabetes mellitus
     Route: 058
  2. MOUNJARO [Interacting]
     Active Substance: TIRZEPATIDE
     Indication: Diabetes mellitus
     Route: 058
  3. MOUNJARO [Interacting]
     Active Substance: TIRZEPATIDE
     Indication: Diabetes mellitus
     Route: 058
  4. MOUNJARO [Interacting]
     Active Substance: TIRZEPATIDE
     Indication: Diabetes mellitus
     Route: 058
  5. MOUNJARO [Interacting]
     Active Substance: TIRZEPATIDE
     Route: 058
  6. MOUNJARO [Interacting]
     Active Substance: TIRZEPATIDE
     Route: 058
  7. MOUNJARO [Interacting]
     Active Substance: TIRZEPATIDE
     Route: 058
  8. MOUNJARO [Interacting]
     Active Substance: TIRZEPATIDE
     Route: 058
  9. TALTZ [Interacting]
     Active Substance: IXEKIZUMAB
     Indication: Psoriasis
     Route: 058
  10. TALTZ [Interacting]
     Active Substance: IXEKIZUMAB
     Route: 058

REACTIONS (7)
  - Osteomyelitis [Unknown]
  - Diabetic wound [Not Recovered/Not Resolved]
  - Increased appetite [Not Recovered/Not Resolved]
  - Glycosylated haemoglobin increased [Unknown]
  - Drug interaction [Unknown]
  - Psoriasis [Unknown]
  - Product storage error [Unknown]

NARRATIVE: CASE EVENT DATE: 20250501
